FAERS Safety Report 4595597-5 (Version None)
Quarter: 2005Q1

REPORT INFORMATION
  Report Type: 
  Country: None (occurrence: None)
  Receive Date: 20050224
  Receipt Date: 20050131
  Transmission Date: 20050727
  Serious: Yes (Other)
  Sender: FDA-Public Use
  Company Number: USA050189521

PATIENT
  Age: 60 Year
  Sex: Female

DRUGS (2)
  1. HUMULIN R [Suspect]
  2. HUMULIN N [Suspect]
     Dosage: 15 U/2 DAY

REACTIONS (7)
  - ABDOMINAL DISTENSION [None]
  - ASTHMA [None]
  - BLOOD GLUCOSE INCREASED [None]
  - BREATHING-RELATED SLEEP DISORDER [None]
  - DRUG INEFFECTIVE [None]
  - GASTRIC DISORDER [None]
  - PHARMACEUTICAL PRODUCT COMPLAINT [None]
